FAERS Safety Report 8200894-8 (Version None)
Quarter: 2012Q1

REPORT INFORMATION
  Report Type: 
  Country: None (occurrence: None)
  Receive Date: 20120312
  Receipt Date: 20110607
  Transmission Date: 20120608
  Serious: No
  Sender: FDA-Public Use
  Company Number: US-ABBOTT-11P-163-0731564-00

PATIENT
  Sex: Female

DRUGS (1)
  1. LUPRON DEPOT [Suspect]
     Indication: ENDOMETRIOSIS
     Dates: start: 20110425

REACTIONS (5)
  - BURNING SENSATION [None]
  - PARAESTHESIA [None]
  - CONTUSION [None]
  - GINGIVAL BLEEDING [None]
  - LOCAL SWELLING [None]
